FAERS Safety Report 9372090 (Version 1)
Quarter: 2013Q2

REPORT INFORMATION
  Report Type: Report from Study
  Country: CA (occurrence: CA)
  Receive Date: 20130627
  Receipt Date: 20130627
  Transmission Date: 20140414
  Serious: Yes (Hospitalization, Other)
  Sender: FDA-Public Use
  Company Number: CA-JNJFOC-20130602388

PATIENT
  Age: 57 Year
  Sex: Female
  Weight: 70 kg

DRUGS (2)
  1. REMICADE [Suspect]
     Indication: CROHN^S DISEASE
     Route: 042
     Dates: start: 20110701
  2. REMICADE [Suspect]
     Indication: CROHN^S DISEASE
     Dosage: POSSIBLY IN MARCH
     Route: 042

REACTIONS (4)
  - Depression [Not Recovered/Not Resolved]
  - Rales [Unknown]
  - Crohn^s disease [Unknown]
  - Influenza like illness [Unknown]
